FAERS Safety Report 17791080 (Version 1)
Quarter: 2020Q2

REPORT INFORMATION
  Report Type: Spontaneous
  Country: CA (occurrence: CA)
  Receive Date: 20200515
  Receipt Date: 20200515
  Transmission Date: 20200714
  Serious: Yes (Life-Threatening, Hospitalization, Other)
  Sender: FDA-Public Use
  Company Number: CA-BAXTER-2020BAX009854

PATIENT
  Age: 41 Year
  Sex: Female

DRUGS (7)
  1. NOVORAPID [Concomitant]
     Active Substance: INSULIN ASPART
     Indication: SUICIDE ATTEMPT
     Route: 065
  2. OCTREOTIDE. [Concomitant]
     Active Substance: OCTREOTIDE
     Indication: PRODUCT USED FOR UNKNOWN INDICATION
     Dosage: DOSAGE FORM: NOT SPECIFIED
     Route: 065
  3. ZOPICLONE [Concomitant]
     Active Substance: ZOPICLONE
     Indication: SUICIDE ATTEMPT
     Route: 065
  4. 10% DEXTROSE INJ [Suspect]
     Active Substance: DEXTROSE
     Indication: HYPOGLYCAEMIA
     Dosage: DOSAGE FORM: SOLUTION INTRAVENOUS
     Route: 042
  5. CLONAZEPAM. [Concomitant]
     Active Substance: CLONAZEPAM
     Indication: PRODUCT USED FOR UNKNOWN INDICATION
     Dosage: DOSAGE FORM: TABLET
     Route: 065
  6. 50% DEXTROSE INJ, USP [Suspect]
     Active Substance: DEXTROSE
     Indication: HYPOGLYCAEMIA
     Dosage: DOSAGE FORM: SOLUTION INTRAVENOUS
     Route: 065
  7. 10% DEXTROSE INJ [Suspect]
     Active Substance: DEXTROSE
     Dosage: DOSE: 50 (UNIT UNKNOWN)?DOSAGE FORM: SOLUTION INTRAVENOUS
     Route: 065

REACTIONS (7)
  - Intentional overdose [Recovering/Resolving]
  - Lethargy [Recovering/Resolving]
  - Hyperhidrosis [Recovering/Resolving]
  - Hypoglycaemia [Recovering/Resolving]
  - Ataxia [Recovering/Resolving]
  - Drug ineffective [Recovering/Resolving]
  - Oedema peripheral [Recovering/Resolving]
